FAERS Safety Report 18152089 (Version 1)
Quarter: 2020Q3

REPORT INFORMATION
  Report Type: Spontaneous
  Country: ES (occurrence: ES)
  Receive Date: 20200814
  Receipt Date: 20200814
  Transmission Date: 20201103
  Serious: Yes (Death)
  Sender: FDA-Public Use
  Company Number: ES-B.I. PHARMACEUTICALS,INC./RIDGEFIELD-2020-12-041421

PATIENT
  Age: 93 Year
  Sex: Female
  Weight: 40 kg

DRUGS (5)
  1. METOJECT [Concomitant]
     Active Substance: METHOTREXATE SODIUM
     Indication: RHEUMATOID ARTHRITIS
     Dosage: 1 JERINGA PRECARGADA CADA 7 DIAS, 15MG/0,30ML
     Route: 065
     Dates: start: 20190814
  2. BISOPROLOL [Concomitant]
     Active Substance: BISOPROLOL
     Indication: MYOCARDIAL ISCHAEMIA
     Dosage: 1 TABLET EVERY DAY
     Route: 065
     Dates: start: 20190116
  3. JARDIANCE [Suspect]
     Active Substance: EMPAGLIFLOZIN
     Indication: TYPE 2 DIABETES MELLITUS
     Dosage: 1 TABLET EVERY DAY
     Route: 065
     Dates: start: 20190116
  4. ABASAGLAR [Concomitant]
     Active Substance: INSULIN GLARGINE
     Indication: TYPE 2 DIABETES MELLITUS
     Dosage: 0IU AT BREAKFAST, 0IU AT DINNER, 16IU AT LUNCH
     Route: 065
     Dates: start: 20180806
  5. ACFOL [Concomitant]
     Active Substance: FOLIC ACID
     Indication: RHEUMATOID ARTHRITIS
     Dosage: 1 TABLET EVERY 7 DAYS
     Route: 065
     Dates: start: 20181003

REACTIONS (3)
  - Pyelonephritis acute [Fatal]
  - Cholecystitis acute [Fatal]
  - Urosepsis [Fatal]

NARRATIVE: CASE EVENT DATE: 20200422
